FAERS Safety Report 17967574 (Version 3)
Quarter: 2020Q3

REPORT INFORMATION
  Report Type: Report from Study
  Country: US (occurrence: US)
  Receive Date: 20200701
  Receipt Date: 20200930
  Transmission Date: 20201103
  Serious: Yes (Hospitalization)
  Sender: FDA-Public Use
  Company Number: US-ROCHE-2632043

PATIENT
  Age: 54 Year
  Sex: Male
  Weight: 126.2 kg

DRUGS (2)
  1. OBINUTUZUMAB. [Suspect]
     Active Substance: OBINUTUZUMAB
     Indication: CHRONIC LYMPHOCYTIC LEUKAEMIA
     Dosage: 100 MG IV ON DAY 1, CYCLE 1, 900 MG IV ON DAY 2, CYCLE 1, 1000 MG IV ON DAY 8, CYCLE 1, 1000 MG IV O
     Route: 042
     Dates: start: 20200423
  2. IBRUTINIB [Suspect]
     Active Substance: IBRUTINIB
     Indication: CHRONIC LYMPHOCYTIC LEUKAEMIA
     Dosage: ON DAYS 1 TO 28?DATE IBRUTINIB WAS LAST ADMINISTERED: 08/JUN/2020
     Route: 048
     Dates: start: 20200423

REACTIONS (2)
  - Headache [Unknown]
  - Haemorrhage intracranial [Unknown]

NARRATIVE: CASE EVENT DATE: 20200609
